FAERS Safety Report 24358212 (Version 1)
Quarter: 2024Q3

REPORT INFORMATION
  Report Type: Spontaneous
  Country: IT (occurrence: IT)
  Receive Date: 20240924
  Receipt Date: 20240924
  Transmission Date: 20241017
  Serious: Yes (Other)
  Sender: ELI LILLY AND CO
  Company Number: None

PATIENT
  Age: 20 Year
  Sex: Female

DRUGS (1)
  1. OLUMIANT [Suspect]
     Active Substance: BARICITINIB
     Indication: Juvenile idiopathic arthritis
     Dosage: 4 MG, DAILY
     Route: 048
     Dates: start: 20240416, end: 20240703

REACTIONS (1)
  - Herpes zoster cutaneous disseminated [Not Recovered/Not Resolved]

NARRATIVE: CASE EVENT DATE: 20240703
